FAERS Safety Report 4958066-6 (Version None)
Quarter: 2006Q1

REPORT INFORMATION
  Report Type: 
  Country: None (occurrence: None)
  Receive Date: 20060330
  Receipt Date: 20060322
  Transmission Date: 20060701
  Serious: Yes (Hospitalization)
  Sender: FDA-Public Use
  Company Number: US-AMGEN-US173426

PATIENT
  Sex: Male

DRUGS (11)
  1. ARANESP [Suspect]
     Indication: DIALYSIS
     Route: 058
     Dates: start: 20050401, end: 20060321
  2. TOPROL-XL [Concomitant]
  3. AMIODARONE [Concomitant]
  4. ALLOPURINOL [Concomitant]
  5. LIPITOR [Concomitant]
  6. DIATX [Concomitant]
  7. COLCHICINE [Concomitant]
  8. FLOMAX [Concomitant]
  9. METAMUCIL [Concomitant]
  10. VANCOMYCIN [Concomitant]
  11. ANCEF [Concomitant]

REACTIONS (5)
  - ASTHENIA [None]
  - PANCYTOPENIA [None]
  - SKIN ULCER [None]
  - THERAPEUTIC RESPONSE DECREASED [None]
  - WOUND INFECTION [None]
